FAERS Safety Report 7748828-4 (Version None)
Quarter: 2011Q3

REPORT INFORMATION
  Report Type: 
  Country: None (occurrence: None)
  Receive Date: 20110914
  Receipt Date: 20100429
  Transmission Date: 20111222
  Serious: No
  Sender: FDA-Public Use
  Company Number: US-BAYER-201021381NA

PATIENT
  Sex: Female

DRUGS (2)
  1. MIRENA [Suspect]
     Indication: CONTRACEPTION
     Dosage: 20 ?G, QD
     Route: 015
     Dates: start: 20080901
  2. YASMIN [Suspect]

REACTIONS (6)
  - MEDICAL DEVICE COMPLICATION [None]
  - MOOD SWINGS [None]
  - TRICHORRHEXIS [None]
  - OVARIAN CYST [None]
  - ALOPECIA [None]
  - EXPOSURE DURING BREAST FEEDING [None]
